FAERS Safety Report 16253496 (Version 3)
Quarter: 2019Q3

REPORT INFORMATION
  Report Type: Spontaneous
  Country: US (occurrence: US)
  Receive Date: 20190430
  Receipt Date: 20190916
  Transmission Date: 20191004
  Serious: No
  Sender: FDA-Public Use
  Company Number: US-BIOGEN-2019BI00721410

PATIENT
  Sex: Male

DRUGS (1)
  1. TYSABRI [Suspect]
     Active Substance: NATALIZUMAB
     Indication: MULTIPLE SCLEROSIS
     Dosage: INFUSED OVER 1 HOUR
     Dates: start: 20190218

REACTIONS (5)
  - Product dose omission [Unknown]
  - Pain [Unknown]
  - Multiple sclerosis [Unknown]
  - Dyspepsia [Unknown]
  - Prostatic disorder [Unknown]
